FAERS Safety Report 5880784-6 (Version None)
Quarter: 2008Q3

REPORT INFORMATION
  Report Type: 
  Country: None (occurrence: None)
  Receive Date: 20080912
  Receipt Date: 20080627
  Transmission Date: 20090109
  Serious: No
  Sender: FDA-Public Use
  Company Number: US-ABBOTT-08P-163-0456150-00

PATIENT
  Sex: Female
  Weight: 67.192 kg

DRUGS (7)
  1. HUMIRA [Suspect]
     Indication: CROHN'S DISEASE
     Route: 058
     Dates: start: 20080528
  2. HUMIRA [Suspect]
     Indication: ANKYLOSING SPONDYLITIS
  3. LEVOTHYROXINE SODIUM [Concomitant]
     Indication: HYPOTHYROIDISM
     Route: 048
  4. CYCLOBENZAPRINE HCL [Concomitant]
     Indication: DRUG USE FOR UNKNOWN INDICATION
     Route: 047
  5. VAGISIL [Concomitant]
     Indication: VULVOVAGINAL DRYNESS
     Route: 067
  6. KAPSOVIT [Concomitant]
     Indication: VITAMIN SUPPLEMENTATION
     Route: 048
  7. IBANDRONATE SODIUM [Concomitant]
     Indication: BONE DISORDER
     Route: 048

REACTIONS (5)
  - PHOTOSENSITIVITY REACTION [None]
  - RASH [None]
  - RASH MACULAR [None]
  - RASH PAPULAR [None]
  - RASH PRURITIC [None]
